FAERS Safety Report 10964384 (Version 1)
Quarter: 2015Q1

REPORT INFORMATION
  Report Type: Spontaneous
  Country: CA (occurrence: CA)
  Receive Date: 20150329
  Receipt Date: 20150329
  Transmission Date: 20150721
  Serious: Yes (Death)
  Sender: FDA-Public Use
  Company Number: CA-TEVA-550900ACC

PATIENT
  Age: 71 Year
  Sex: Female

DRUGS (7)
  1. CODEINE [Suspect]
     Active Substance: CODEINE
     Dosage: UNKNOWN FORM STRENGTH
     Route: 065
  2. OXYCODONE [Suspect]
     Active Substance: OXYCODONE
     Dosage: UNKNOWN FORM STRENGTH
     Route: 065
  3. PARACETAMOL [Suspect]
     Active Substance: ACETAMINOPHEN
     Dosage: UNKNOWN FORM STRENGTH
     Route: 065
  4. CLONAZEPAM. [Suspect]
     Active Substance: CLONAZEPAM
     Dosage: UNKNOWN FORM STRENGTH
     Route: 065
  5. MORPHINE [Suspect]
     Active Substance: MORPHINE
     Dosage: UNKNOWN FORM STRENGTH
     Route: 065
  6. DIPHENHYDRAMINE [Suspect]
     Active Substance: DIPHENHYDRAMINE
     Dosage: UNKNOWN FORM STRENGTH
     Route: 065
  7. NITRAZEPAM [Suspect]
     Active Substance: NITRAZEPAM
     Indication: PAIN
     Dosage: UNKNOWN FORM STRENGTH
     Route: 065

REACTIONS (5)
  - Fall [Fatal]
  - Myocardial infarction [Fatal]
  - Somnolence [Fatal]
  - Face oedema [Fatal]
  - Pulmonary oedema [Fatal]
